FAERS Safety Report 6611176-X (Version None)
Quarter: 2010Q1

REPORT INFORMATION
  Report Type: 
  Country: None (occurrence: None)
  Receive Date: 20100301
  Receipt Date: 20100301
  Transmission Date: 20100710
  Serious: No
  Sender: FDA-Public Use
  Company Number: None

PATIENT

DRUGS (1)
  1. NYSTATIN [Suspect]
     Indication: ORAL CANDIDIASIS
     Dosage: 5 ML 4 X/DAY ORAL RINSE
     Route: 048
     Dates: start: 20100121

REACTIONS (2)
  - DYSPHAGIA [None]
  - PALPITATIONS [None]
